FAERS Safety Report 7343211-8 (Version None)
Quarter: 2011Q1

REPORT INFORMATION
  Report Type: 
  Country: None (occurrence: None)
  Receive Date: 20110310
  Receipt Date: 20110303
  Transmission Date: 20110831
  Serious: Yes (Other)
  Sender: FDA-Public Use
  Company Number: US-US-EMD SERONO, INC.-7011841

PATIENT
  Sex: Male

DRUGS (4)
  1. UNSPECIFIED ANTIDEPRESSANTS [Concomitant]
     Indication: DEPRESSION
  2. WELLBUTRIN [Concomitant]
     Indication: DEPRESSION
     Dates: start: 20110101
  3. REBIF [Suspect]
     Indication: MULTIPLE SCLEROSIS
     Route: 058
     Dates: start: 20100630, end: 20100101
  4. REBIF [Suspect]
     Route: 058
     Dates: start: 20100101

REACTIONS (10)
  - INJECTION SITE PAIN [None]
  - DEPRESSION [None]
  - PAIN IN EXTREMITY [None]
  - FATIGUE [None]
  - OPTIC NEURITIS [None]
  - HYPERSENSITIVITY [None]
  - INJECTION SITE ERYTHEMA [None]
  - MUSCLE SPASMS [None]
  - INJECTION SITE URTICARIA [None]
  - INJECTION SITE PRURITUS [None]
